FAERS Safety Report 6376395-9 (Version None)
Quarter: 2009Q3

REPORT INFORMATION
  Report Type: 
  Country: None (occurrence: None)
  Receive Date: 20090925
  Receipt Date: 20090918
  Transmission Date: 20100115
  Serious: Yes (Death, Hospitalization)
  Sender: FDA-Public Use
  Company Number: US-JNJFOC-20090905592

PATIENT
  Age: 3 Year
  Sex: Female

DRUGS (4)
  1. TYLENOL (CAPLET) [Suspect]
     Route: 048
     Dates: start: 19930802, end: 19930805
  2. TYLENOL (CAPLET) [Suspect]
     Indication: PYREXIA
     Dosage: APPROXIMATELY 325-650 MG Q4H PO
     Route: 048
     Dates: start: 19930802, end: 19930805
  3. PEPTO-BISMOL [Concomitant]
     Dosage: 2 OUNCES THROUGHOUT THE DAY
  4. IMODIUM A-D [Concomitant]
     Dosage: APPROXIMATELY 1-2 DOSES REPORTEDLY ADMINISTERED.

REACTIONS (7)
  - COMA [None]
  - CONVULSION [None]
  - HEPATIC NECROSIS [None]
  - HEPATOTOXICITY [None]
  - HYPOGLYCAEMIA [None]
  - LIVER INJURY [None]
  - OVERDOSE [None]
